FAERS Safety Report 9820489 (Version 2)
Quarter: 2013Q4

REPORT INFORMATION
  Report Type: Spontaneous
  Country: US (occurrence: None)
  Receive Date: 20131028
  Receipt Date: 20131028
  Transmission Date: 20140711
  Serious: Yes (Hospitalization, Other)
  Sender: FDA-Public Use
  Company Number: 2013US001725

PATIENT
  Age: 24 Year
  Sex: Male
  Weight: 70 kg

DRUGS (6)
  1. ICLUSIG (PONATINIB) TABLET, 15MG [Suspect]
     Indication: CHROMOSOME ANALYSIS ABNORMAL
     Route: 048
     Dates: start: 20130523, end: 20130528
  2. ICLUSIG (PONATINIB) TABLET, 15MG [Suspect]
     Indication: ACUTE LYMPHOCYTIC LEUKAEMIA
     Route: 048
     Dates: start: 20130523, end: 20130528
  3. FLUCONAZOLE (FLUCONAZOLE) [Concomitant]
  4. ACYCLOVIR (ACYCLOVIR) [Concomitant]
  5. ACTONEL (RISEDERONATE SODIUM) [Concomitant]
  6. TRAMADOL (TRAMADOL) [Concomitant]

REACTIONS (4)
  - Neutrophil count abnormal [None]
  - Platelet count decreased [None]
  - White blood cell count decreased [None]
  - Pyrexia [None]
